FAERS Safety Report 4303035-2 (Version None)
Quarter: 2004Q1

REPORT INFORMATION
  Report Type: 
  Country: None (occurrence: None)
  Receive Date: 20040224
  Receipt Date: 20040217
  Transmission Date: 20041129
  Serious: Yes (Hospitalization, Disabling)
  Sender: FDA-Public Use
  Company Number: WAES 0402USA01231

PATIENT
  Age: 24 Year
  Sex: Male

DRUGS (2)
  1. NIVAQUINE [Concomitant]
  2. STROMECTOL [Suspect]
     Route: 048
     Dates: start: 20040212, end: 20040212

REACTIONS (4)
  - APHASIA [None]
  - DISORIENTATION [None]
  - FATIGUE [None]
  - SOMNOLENCE [None]
